FAERS Safety Report 9689270 (Version 3)
Quarter: 2014Q1

REPORT INFORMATION
  Report Type: Spontaneous
  Country: JP (occurrence: JP)
  Receive Date: 20131114
  Receipt Date: 20140114
  Transmission Date: 20141002
  Serious: Yes (Other)
  Sender: FDA-Public Use
  Company Number: JP-009507513-1311JPN005259

PATIENT
  Age: 69 Year
  Sex: Male

DRUGS (4)
  1. GASTER D [Suspect]
     Dosage: 10 MG, UID,QD
     Route: 048
  2. LOXONIN [Suspect]
  3. ZITHROMAC [Suspect]
     Dosage: REGIMEN NO. 1
  4. ELPINAN [Concomitant]
     Route: 048

REACTIONS (1)
  - Nephritis [Unknown]
